FAERS Safety Report 22655620 (Version 1)
Quarter: 2023Q2

REPORT INFORMATION
  Report Type: Spontaneous
  Country: CN (occurrence: CN)
  Receive Date: 20230629
  Receipt Date: 20230629
  Transmission Date: 20230721
  Serious: Yes (Life-Threatening, Hospitalization)
  Sender: FDA-Public Use
  Company Number: CN-BAUSCHBL-2023BNL005278

PATIENT
  Age: 85 Year
  Sex: Male

DRUGS (1)
  1. METHAZOLAMIDE [Suspect]
     Active Substance: METHAZOLAMIDE
     Indication: Glaucoma
     Route: 065
     Dates: start: 20191005

REACTIONS (1)
  - SJS-TEN overlap [Recovered/Resolved]

NARRATIVE: CASE EVENT DATE: 20191006
